FAERS Safety Report 12056275 (Version 3)
Quarter: 2017Q2

REPORT INFORMATION
  Report Type: Spontaneous
  Country: US (occurrence: US)
  Receive Date: 20160210
  Receipt Date: 20170524
  Transmission Date: 20170829
  Serious: Yes (Other)
  Sender: FDA-Public Use
  Company Number: US-ROCHE-1708277

PATIENT
  Age: 86 Year
  Sex: Male

DRUGS (34)
  1. LUCENTIS [Suspect]
     Active Substance: RANIBIZUMAB
     Indication: NEOVASCULAR AGE-RELATED MACULAR DEGENERATION
     Route: 050
     Dates: start: 20101221, end: 201402
  2. LUCENTIS [Suspect]
     Active Substance: RANIBIZUMAB
     Route: 050
     Dates: start: 20110304
  3. LUCENTIS [Suspect]
     Active Substance: RANIBIZUMAB
     Route: 050
     Dates: start: 20111214
  4. LUCENTIS [Suspect]
     Active Substance: RANIBIZUMAB
     Route: 050
     Dates: start: 20120331
  5. LUCENTIS [Suspect]
     Active Substance: RANIBIZUMAB
     Route: 050
     Dates: start: 20120504
  6. LUCENTIS [Suspect]
     Active Substance: RANIBIZUMAB
     Route: 050
     Dates: start: 20120608
  7. LUCENTIS [Suspect]
     Active Substance: RANIBIZUMAB
     Route: 050
     Dates: start: 20121219
  8. LUCENTIS [Suspect]
     Active Substance: RANIBIZUMAB
     Route: 050
     Dates: start: 20130123
  9. LUCENTIS [Suspect]
     Active Substance: RANIBIZUMAB
     Route: 050
     Dates: start: 20130515
  10. LUCENTIS [Suspect]
     Active Substance: RANIBIZUMAB
     Dosage: DOSE :0.05 (UNIT NOT REPORTED)
     Route: 050
     Dates: start: 20130828
  11. LUCENTIS [Suspect]
     Active Substance: RANIBIZUMAB
     Route: 050
     Dates: start: 20110511
  12. LUCENTIS [Suspect]
     Active Substance: RANIBIZUMAB
     Route: 050
     Dates: start: 20120118
  13. LUCENTIS [Suspect]
     Active Substance: RANIBIZUMAB
     Route: 050
     Dates: start: 20120711
  14. LUCENTIS [Suspect]
     Active Substance: RANIBIZUMAB
     Route: 050
     Dates: start: 20120810
  15. LUCENTIS [Suspect]
     Active Substance: RANIBIZUMAB
     Route: 050
     Dates: start: 20110204
  16. LUCENTIS [Suspect]
     Active Substance: RANIBIZUMAB
     Route: 050
     Dates: start: 20110824
  17. LUCENTIS [Suspect]
     Active Substance: RANIBIZUMAB
     Route: 050
     Dates: start: 20111019
  18. LUCENTIS [Suspect]
     Active Substance: RANIBIZUMAB
     Dosage: DOSE :0.05 (UNIT NOT REPORTED)
     Route: 050
     Dates: start: 20130724
  19. LUCENTIS [Suspect]
     Active Substance: RANIBIZUMAB
     Route: 050
     Dates: start: 20110401
  20. LUCENTIS [Suspect]
     Active Substance: RANIBIZUMAB
     Route: 050
     Dates: start: 20111116
  21. LUCENTIS [Suspect]
     Active Substance: RANIBIZUMAB
     Dosage: DOSE :0.05 (UNIT NOT REPORTED)
     Route: 050
     Dates: start: 20140115
  22. LUCENTIS [Suspect]
     Active Substance: RANIBIZUMAB
     Dosage: DOSE :0.05 (UNIT NOT REPORTED)
     Route: 050
     Dates: start: 20140212
  23. LUCENTIS [Suspect]
     Active Substance: RANIBIZUMAB
     Route: 050
     Dates: start: 20110720
  24. LUCENTIS [Suspect]
     Active Substance: RANIBIZUMAB
     Route: 050
     Dates: start: 20110921
  25. LUCENTIS [Suspect]
     Active Substance: RANIBIZUMAB
     Route: 050
     Dates: start: 20130612
  26. LUCENTIS [Suspect]
     Active Substance: RANIBIZUMAB
     Route: 050
     Dates: start: 20130227
  27. LUCENTIS [Suspect]
     Active Substance: RANIBIZUMAB
     Route: 050
     Dates: start: 20110622
  28. LUCENTIS [Suspect]
     Active Substance: RANIBIZUMAB
     Route: 050
     Dates: start: 20120912
  29. LUCENTIS [Suspect]
     Active Substance: RANIBIZUMAB
     Route: 050
     Dates: start: 20121010
  30. LUCENTIS [Suspect]
     Active Substance: RANIBIZUMAB
     Route: 050
     Dates: start: 20130410
  31. LUCENTIS [Suspect]
     Active Substance: RANIBIZUMAB
     Dosage: DOSE :0.05 (UNIT NOT REPORTED)
     Route: 050
     Dates: start: 20131204
  32. LUCENTIS [Suspect]
     Active Substance: RANIBIZUMAB
     Route: 050
     Dates: start: 20120222
  33. LUCENTIS [Suspect]
     Active Substance: RANIBIZUMAB
     Route: 050
     Dates: start: 20121114
  34. LUCENTIS [Suspect]
     Active Substance: RANIBIZUMAB
     Dosage: DOSE :0.05 (UNIT NOT REPORTED)
     Route: 050
     Dates: start: 20131023

REACTIONS (6)
  - Depression [Unknown]
  - Endophthalmitis [Unknown]
  - Eye pain [Unknown]
  - Blindness unilateral [Unknown]
  - Entropion [Unknown]
  - Corneal decompensation [Unknown]

NARRATIVE: CASE EVENT DATE: 20140212
